FAERS Safety Report 9914263 (Version 1)
Quarter: 2014Q1

REPORT INFORMATION
  Report Type: Spontaneous
  Country: US (occurrence: None)
  Receive Date: 20140219
  Receipt Date: 20140219
  Transmission Date: 20141002
  Serious: Yes (Other)
  Sender: FDA-Public Use
  Company Number: None

PATIENT
  Age: 61 Year
  Sex: Male
  Weight: 82.56 kg

DRUGS (2)
  1. LYRICA [Suspect]
     Indication: SPINAL CORD INJURY
     Route: 048
     Dates: start: 20131111, end: 20131220
  2. LYRICA [Suspect]
     Indication: ROAD TRAFFIC ACCIDENT
     Route: 048
     Dates: start: 20131111, end: 20131220

REACTIONS (13)
  - Anxiety [None]
  - Restlessness [None]
  - Insomnia [None]
  - Irritability [None]
  - Panic attack [None]
  - Agitation [None]
  - Dry mouth [None]
  - Vision blurred [None]
  - Logorrhoea [None]
  - Local swelling [None]
  - Local swelling [None]
  - Mania [None]
  - Disturbance in attention [None]
